FAERS Safety Report 19447542 (Version 1)
Quarter: 2021Q2

REPORT INFORMATION
  Report Type: Spontaneous
  Country: US (occurrence: US)
  Receive Date: 20210622
  Receipt Date: 20210622
  Transmission Date: 20210717
  Serious: Yes (Other)
  Sender: FDA-Public Use
  Company Number: US-BAUSCH-BL-2021-020611

PATIENT
  Age: 40 Year
  Sex: Male

DRUGS (9)
  1. FLUOROMETHOLONE. [Concomitant]
     Active Substance: FLUOROMETHOLONE
     Indication: PHOTOPHOBIA
  2. PREDNISOLONE. [Concomitant]
     Active Substance: PREDNISOLONE
  3. MOXIFLOXACIN. [Concomitant]
     Active Substance: MOXIFLOXACIN
     Indication: NECROTISING RETINITIS
     Route: 061
  4. FOSCARNET [Concomitant]
     Active Substance: FOSCARNET
     Indication: NECROTISING RETINITIS
     Dosage: INTRAVITREAL (EVERY 3 DAYS FOR A TOTAL OF FIVE INJECTIONS)
     Route: 065
  5. SULFACETAMIDE/PREDNISOLONE [Concomitant]
     Indication: PHOTOPHOBIA
     Dosage: OPHTHALMIC SUSPENSION
     Route: 047
  6. PREDNISOLONE. [Concomitant]
     Active Substance: PREDNISOLONE
     Indication: NECROTISING RETINITIS
  7. PREDNISOLONE. [Concomitant]
     Active Substance: PREDNISOLONE
     Dosage: TAPERED COURSE
  8. CYCLOPENTOLATE. [Concomitant]
     Active Substance: CYCLOPENTOLATE
     Indication: NECROTISING RETINITIS
  9. ACYCLOVIR. [Suspect]
     Active Substance: ACYCLOVIR
     Indication: NECROTISING RETINITIS
     Dosage: TOTAL 3 G/24 H)
     Route: 042

REACTIONS (1)
  - Nephropathy [Recovered/Resolved]
